FAERS Safety Report 10391448 (Version 1)
Quarter: 2014Q3

REPORT INFORMATION
  Report Type: Spontaneous
  Country: CA (occurrence: CA)
  Receive Date: 20140818
  Receipt Date: 20140818
  Transmission Date: 20150326
  Serious: Yes (Hospitalization)
  Sender: FDA-Public Use
  Company Number: CA-MYLAN-2014M1001428

PATIENT

DRUGS (3)
  1. CLARITHROMYCIN. [Interacting]
     Active Substance: CLARITHROMYCIN
     Dosage: 1 G PER DAY
     Route: 065
  2. LEVOTHYROXINE SODIUM. [Concomitant]
     Active Substance: LEVOTHYROXINE SODIUM
     Indication: PITUITARY TUMOUR REMOVAL
     Dosage: 100 MICROG PER DAY
     Route: 065
  3. PREDNISONE. [Suspect]
     Active Substance: PREDNISONE
     Indication: PITUITARY TUMOUR REMOVAL
     Dosage: 5 MG PER DAY
     Route: 065

REACTIONS (2)
  - Drug interaction [Recovering/Resolving]
  - Mania [Recovering/Resolving]
